FAERS Safety Report 5154508-4 (Version None)
Quarter: 2006Q4

REPORT INFORMATION
  Report Type: 
  Country: None (occurrence: None)
  Receive Date: 20061114
  Receipt Date: 19981217
  Transmission Date: 20070319
  Serious: Yes (Death, Hospitalization)
  Sender: FDA-Public Use
  Company Number: 2006121596

PATIENT
  Age: 63 Year
  Sex: Male

DRUGS (6)
  1. IRINOTECAN HCL [Suspect]
     Indication: COLORECTAL CANCER
     Dosage: 350 MG, INTRAVENOUS
     Route: 042
     Dates: start: 19980616, end: 19980616
  2. IRINOTECAN HCL [Suspect]
     Indication: COLORECTAL CANCER
     Dosage: 350 MG, INTRAVENOUS
     Route: 042
     Dates: start: 19981124, end: 19981124
  3. AMINOPHYLLIN [Concomitant]
  4. BUDESONIDE [Concomitant]
  5. LOPERAMIDE HCL [Concomitant]
  6. TERBUTALINE SULFATE [Concomitant]

REACTIONS (3)
  - CIRCULATORY COLLAPSE [None]
  - ILL-DEFINED DISORDER [None]
  - LOSS OF CONSCIOUSNESS [None]
